FAERS Safety Report 6686261-7 (Version None)
Quarter: 2010Q2

REPORT INFORMATION
  Report Type: 
  Country: None (occurrence: None)
  Receive Date: 20100419
  Receipt Date: 20100412
  Transmission Date: 20101027
  Serious: Yes (Hospitalization)
  Sender: FDA-Public Use
  Company Number: FR-ASTRAZENECA-2009SE04179

PATIENT
  Age: 71 Year
  Sex: Female

DRUGS (7)
  1. ZESTORETIC [Suspect]
     Indication: HYPERTENSION
     Dosage: 20+12.5 MG; 1 DF DAILY
     Route: 048
     Dates: end: 20090401
  2. LASIX [Interacting]
     Route: 048
  3. RISPERDAL [Interacting]
     Route: 048
     Dates: start: 20090401, end: 20090401
  4. LECTIL [Concomitant]
  5. TEGRETOL [Concomitant]
  6. ZOLPIDEM [Concomitant]
  7. LEXOMIL [Concomitant]

REACTIONS (4)
  - DIZZINESS [None]
  - DRUG INTERACTION [None]
  - HEADACHE [None]
  - HYPOTENSION [None]
